FAERS Safety Report 8875096 (Version 1)
Quarter: 2012Q4

REPORT INFORMATION
  Report Type: 
  Country: JP (occurrence: JP)
  Receive Date: 20121023
  Receipt Date: 20121023
  Transmission Date: 20130627
  Serious: Yes (Death, Hospitalization)
  Sender: FDA-Public Use
  Company Number: JP-ELI_LILLY_AND_COMPANY-JP201206000468

PATIENT
  Age: 72 Year
  Sex: Male
  Weight: 48.4 kg

DRUGS (6)
  1. GEMZAR [Suspect]
     Indication: PANCREATIC CARCINOMA STAGE IV
     Dosage: 1000 mg, UNK
     Route: 042
     Dates: start: 20091013, end: 20091124
  2. CRAVIT [Concomitant]
     Dosage: 100 mg, qd
     Route: 048
  3. ZYLORIC [Concomitant]
     Dosage: 6 DF, qd
     Route: 048
  4. LANTUS [Concomitant]
     Dosage: 4 u, UNK
     Dates: start: 20091027
  5. GRANISETRON [Concomitant]
     Indication: PROPHYLAXIS
     Dosage: 3 mg, UNK
  6. DECADRON                                /CAN/ [Concomitant]
     Indication: PROPHYLAXIS
     Dosage: 12 mg, UNK

REACTIONS (3)
  - Neoplasm progression [Fatal]
  - Metastases to liver [Fatal]
  - Lung disorder [Recovered/Resolved]
